FAERS Safety Report 6637650-8 (Version None)
Quarter: 2010Q1

REPORT INFORMATION
  Report Type: 
  Country: None (occurrence: None)
  Receive Date: 20100317
  Receipt Date: 20100222
  Transmission Date: 20100710
  Serious: Yes (Congenital Anomaly)
  Sender: FDA-Public Use
  Company Number: US-JNJFOC-20060603261

PATIENT
  Sex: Male
  Weight: 2.95 kg

DRUGS (7)
  1. TOPAMAX [Suspect]
     Indication: DRUG EXPOSURE DURING PREGNANCY
     Route: 015
  2. TOPAMAX [Suspect]
     Route: 015
  3. TOPAMAX [Suspect]
     Route: 015
  4. KLONOPIN [Suspect]
     Indication: DRUG EXPOSURE DURING PREGNANCY
     Route: 015
  5. KLOR-CON [Concomitant]
     Indication: DRUG EXPOSURE DURING PREGNANCY
     Route: 015
  6. REMERON [Concomitant]
     Indication: DRUG EXPOSURE DURING PREGNANCY
     Route: 015
  7. SYNTHROID [Concomitant]
     Indication: DRUG EXPOSURE DURING PREGNANCY
     Route: 015

REACTIONS (2)
  - CLEFT LIP [None]
  - CLEFT PALATE [None]
